FAERS Safety Report 7785494-6 (Version None)
Quarter: 2011Q3

REPORT INFORMATION
  Report Type: 
  Country: None (occurrence: None)
  Receive Date: 20110929
  Receipt Date: 20110929
  Transmission Date: 20111222
  Serious: Yes (Hospitalization, Other)
  Sender: FDA-Public Use
  Company Number: PHHO2011FR09127

PATIENT
  Sex: Male
  Weight: 32.9 kg

DRUGS (2)
  1. ILARIS [Suspect]
     Dosage: UNK
  2. ILARIS [Suspect]
     Indication: JUVENILE ARTHRITIS
     Dosage: 4 MG/KG, EVERY 4 WEEKS
     Route: 058
     Dates: start: 20090915

REACTIONS (2)
  - LYMPHADENITIS [None]
  - RHINITIS [None]
